FAERS Safety Report 6907648-0 (Version None)
Quarter: 2010Q3

REPORT INFORMATION
  Report Type: 
  Country: None (occurrence: None)
  Receive Date: 20100805
  Receipt Date: 20100722
  Transmission Date: 20110219
  Serious: Yes (Other)
  Sender: FDA-Public Use
  Company Number: FR-ASTRAZENECA-2010SE34913

PATIENT
  Age: 75 Year
  Sex: Male

DRUGS (17)
  1. DIPRIVAN [Suspect]
     Indication: INDUCTION OF ANAESTHESIA
     Dosage: SINGLE ADMINISTRATION
     Route: 040
     Dates: start: 20100510
  2. NAROPIN [Suspect]
     Indication: NERVE BLOCK
     Dates: start: 20100510
  3. MORPHINE [Suspect]
     Indication: POSTOPERATIVE ANALGESIA
     Route: 042
     Dates: start: 20100510, end: 20100512
  4. XARELTO [Suspect]
     Indication: THROMBOSIS PROPHYLAXIS
     Route: 048
     Dates: start: 20100510, end: 20100519
  5. SEVORANE [Suspect]
     Indication: ANAESTHESIA
     Dosage: SINGLE ADMINISTRATION
     Route: 055
     Dates: start: 20100510, end: 20100510
  6. SUFENTANIL [Suspect]
     Indication: ANAESTHESIA
     Dosage: SINGLE ADMINISTRATION
     Route: 042
     Dates: start: 20100510, end: 20100510
  7. PROFENID [Suspect]
     Indication: POSTOPERATIVE ANALGESIA
     Route: 048
     Dates: start: 20100511, end: 20100512
  8. PERFALGAN [Suspect]
     Indication: POSTOPERATIVE ANALGESIA
     Route: 042
     Dates: start: 20100511, end: 20100512
  9. CEFAMANDOLE PANPHARMA [Suspect]
     Route: 040
     Dates: start: 20100510, end: 20100511
  10. VENOFER [Suspect]
     Indication: ANAEMIA
     Dosage: SINGLE ADMINISTRATION
     Route: 042
     Dates: start: 20100511
  11. TAHOR [Concomitant]
     Indication: METABOLIC SYNDROME
     Route: 048
  12. VASTAREL [Concomitant]
     Route: 048
  13. PANTOPRAZOLE SODIUM [Concomitant]
     Route: 048
  14. XATRAL [Concomitant]
     Route: 048
  15. PIASCLEDINE [Concomitant]
     Indication: OSTEOARTHRITIS
     Route: 048
  16. STRUCTUM [Concomitant]
     Indication: OSTEOARTHRITIS
     Route: 048
  17. ASPIRINE [Concomitant]
     Indication: CAROTID ARTERIOSCLEROSIS
     Route: 048

REACTIONS (4)
  - CHOLESTASIS [None]
  - CONFUSIONAL STATE [None]
  - HEPATIC ENZYME INCREASED [None]
  - JAUNDICE [None]
